FAERS Safety Report 7481450-6 (Version None)
Quarter: 2011Q2

REPORT INFORMATION
  Report Type: 
  Country: None (occurrence: None)
  Receive Date: 20110516
  Receipt Date: 20110502
  Transmission Date: 20111010
  Serious: Yes (Other)
  Sender: FDA-Public Use
  Company Number: US-JNJFOC-20110501036

PATIENT
  Sex: Male
  Weight: 147.42 kg

DRUGS (10)
  1. LISINOPRIL [Concomitant]
     Indication: BLOOD PRESSURE
     Route: 048
     Dates: start: 20070101
  2. XANAX [Concomitant]
     Indication: ANXIETY
     Route: 048
     Dates: start: 20040101
  3. METHOTREXATE [Concomitant]
     Indication: PSORIATIC ARTHROPATHY
     Route: 048
     Dates: start: 20090101
  4. CRESTOR [Concomitant]
     Indication: BLOOD CHOLESTEROL
     Route: 048
     Dates: start: 20080101
  5. REMICADE [Suspect]
     Indication: PSORIATIC ARTHROPATHY
     Route: 042
     Dates: start: 20090101
  6. OXYCODONE HCL [Concomitant]
     Indication: PAIN
     Dosage: 7.5/325 MG TABLET EVERY 4 HOURS, AS NEEDED
     Route: 048
     Dates: start: 20020101
  7. MORPHINE SULFATE [Concomitant]
     Indication: PAIN
     Route: 048
     Dates: start: 20020101
  8. FOLIC ACID [Concomitant]
     Indication: ANAEMIA
     Route: 048
     Dates: start: 20090101
  9. CYCLOBENZAPRINE [Suspect]
     Indication: MUSCLE SPASMS
     Route: 048
     Dates: start: 20100101
  10. NAPROXEN [Concomitant]
     Indication: ANTIINFLAMMATORY THERAPY
     Route: 048

REACTIONS (6)
  - FATIGUE [None]
  - BODY HEIGHT DECREASED [None]
  - HAEMORRHAGE [None]
  - CHONDROPATHY [None]
  - SKIN CHAPPED [None]
  - BLOOD PRESSURE INCREASED [None]
